FAERS Safety Report 7413220-9 (Version None)
Quarter: 2011Q2

REPORT INFORMATION
  Report Type: 
  Country: None (occurrence: None)
  Receive Date: 20110413
  Receipt Date: 20110408
  Transmission Date: 20111010
  Serious: Yes (Other)
  Sender: FDA-Public Use
  Company Number: GB-ABBOTT-11P-167-0717845-00

PATIENT
  Sex: Female

DRUGS (1)
  1. HUMIRA [Suspect]
     Indication: ANKYLOSING SPONDYLITIS
     Route: 058
     Dates: start: 20110301

REACTIONS (5)
  - HYPERHIDROSIS [None]
  - LETHARGY [None]
  - HYPOAESTHESIA [None]
  - OROPHARYNGEAL PAIN [None]
  - PARAESTHESIA [None]
